FAERS Safety Report 5101206-9 (Version None)
Quarter: 2006Q3

REPORT INFORMATION
  Report Type: 
  Country: None (occurrence: None)
  Receive Date: 20060906
  Receipt Date: 20060822
  Transmission Date: 20061208
  Serious: Yes (Other)
  Sender: FDA-Public Use
  Company Number: 2006JP002210

PATIENT
  Sex: Female

DRUGS (4)
  1. PROTOPIC [Suspect]
     Indication: ERYTHEMA
     Dosage: 0.1 %, TOPICAL
     Route: 061
     Dates: start: 20030728, end: 20060327
  2. STEROID EXTERNAL [Concomitant]
  3. ANTIALLERGIC AGENTS [Concomitant]
  4. HERBAL PREPARATION [Concomitant]

REACTIONS (1)
  - B-CELL LYMPHOMA [None]
